FAERS Safety Report 7247468-3 (Version None)
Quarter: 2011Q1

REPORT INFORMATION
  Report Type: 
  Country: None (occurrence: None)
  Receive Date: 20110127
  Receipt Date: 20110112
  Transmission Date: 20110831
  Serious: Yes (Other)
  Sender: FDA-Public Use
  Company Number: US-ROCHE-483328

PATIENT
  Sex: Female
  Weight: 74.8 kg

DRUGS (3)
  1. ADVIL LIQUI-GELS [Concomitant]
     Indication: PAIN
     Dosage: DOSAGE REGIMEN REPORTED AS Q6HRS 2D PER MO
     Route: 048
     Dates: start: 19870101
  2. TYLENOL-500 [Concomitant]
     Indication: PAIN
  3. ACCUTANE [Suspect]
     Indication: ACNE
     Dosage: UNITS OF FORMUALTION STRENGTH UNSPECIFIED.
     Route: 048
     Dates: start: 19980209, end: 19980609

REACTIONS (18)
  - POSTPARTUM DEPRESSION [None]
  - GASTROINTESTINAL TRACT ADENOMA [None]
  - POLYP [None]
  - FIBROUS HISTIOCYTOMA [None]
  - RECTAL HAEMORRHAGE [None]
  - BLOOD DISORDER [None]
  - COLITIS ULCERATIVE [None]
  - COLITIS [None]
  - ANAEMIA [None]
  - INFLAMMATORY BOWEL DISEASE [None]
  - EMOTIONAL DISTRESS [None]
  - BREAST CANCER [None]
  - ILL-DEFINED DISORDER [None]
  - CROHN'S DISEASE [None]
  - HIATUS HERNIA [None]
  - IRRITABLE BOWEL SYNDROME [None]
  - EMOTIONAL DISORDER [None]
  - SCOTOMA [None]
